FAERS Safety Report 15119677 (Version 1)
Quarter: 2018Q3

REPORT INFORMATION
  Report Type: Spontaneous
  Country: US (occurrence: US)
  Receive Date: 20180613
  Receipt Date: 20180613
  Transmission Date: 20181010
  Serious: No
  Sender: FDA-Public Use
  Company Number: None

PATIENT
  Age: 81 Year
  Sex: Male

DRUGS (1)
  1. REPATHA [Suspect]
     Active Substance: EVOLOCUMAB
     Indication: TYPE V HYPERLIPIDAEMIA
     Dosage: ?          OTHER ROUTE:INFUSION?
     Dates: start: 20180515, end: 20180611

REACTIONS (3)
  - Hypotension [None]
  - Cough [None]
  - Productive cough [None]

NARRATIVE: CASE EVENT DATE: 20180611
